FAERS Safety Report 17239366 (Version 1)
Quarter: 2020Q3

REPORT INFORMATION
  Report Type: Report from Study
  Country: GB (occurrence: GB)
  Receive Date: 20200106
  Receipt Date: 20200106
  Transmission Date: 20201104
  Serious: Yes (Death)
  Sender: FDA-Public Use
  Company Number: GB-SHIONOGI, INC-2019001165

PATIENT

DRUGS (21)
  1. FLUTICASONE. [Concomitant]
     Active Substance: FLUTICASONE
     Indication: PNEUMONIA
     Dosage: 500 ?G, 2 PER 1 DAY
     Route: 055
     Dates: start: 20191007
  2. VANCOMYCIN [Concomitant]
     Active Substance: VANCOMYCIN
     Indication: PNEUMONIA
     Dosage: UNK
     Route: 048
     Dates: start: 20191018
  3. FOSFOMYCIN [Concomitant]
     Active Substance: FOSFOMYCIN
     Route: 030
  4. GENTAMICIN. [Concomitant]
     Active Substance: GENTAMICIN
  5. SALMETEROL [Concomitant]
     Active Substance: SALMETEROL
     Indication: PNEUMONIA
     Dosage: 50 ?G, 2 PER 1 DAY
     Route: 055
     Dates: start: 20191007
  6. AZITROMICINA [Concomitant]
     Active Substance: AZITHROMYCIN DIHYDRATE
     Indication: PNEUMONIA
     Dosage: UNK
     Route: 048
     Dates: start: 20190930
  7. AZITROMICINA [Concomitant]
     Active Substance: AZITHROMYCIN DIHYDRATE
     Dosage: UNK
     Route: 030
  8. CEFTOLOZANE;TAZOBACTAM [Concomitant]
     Active Substance: CEFTOLOZANE SULFATE\TAZOBACTAM SODIUM
  9. PREDNISOLONE. [Concomitant]
     Active Substance: PREDNISOLONE
     Indication: PNEUMONIA
     Dosage: 30 MG, EVERY MORNING
     Route: 048
  10. HYDROCORTISONE. [Concomitant]
     Active Substance: HYDROCORTISONE
     Indication: PNEUMONIA
     Dosage: UNK
     Route: 042
     Dates: start: 20191015
  11. CEFIDEROCOL. [Suspect]
     Active Substance: CEFIDEROCOL
     Indication: PNEUMONIA
     Dosage: 1.5 EVERY 8 HRS
     Route: 042
     Dates: start: 20191025
  12. TEICOPLANIN [Concomitant]
     Active Substance: TEICOPLANIN
  13. TIGECYCLINE. [Concomitant]
     Active Substance: TIGECYCLINE
     Indication: CHRONIC OBSTRUCTIVE PULMONARY DISEASE
  14. FUROSEMIDE. [Concomitant]
     Active Substance: FUROSEMIDE
     Dosage: UNK
     Route: 042
     Dates: start: 20191007
  15. FUROSEMIDE. [Concomitant]
     Active Substance: FUROSEMIDE
     Dosage: UNK
  16. TAZOCIN [Concomitant]
     Active Substance: PIPERACILLIN SODIUM\TAZOBACTAM SODIUM
     Indication: PNEUMONIA
     Dosage: UNK
     Route: 042
     Dates: start: 20191002
  17. DOXYCYCLINE. [Concomitant]
     Active Substance: DOXYCYCLINE
     Route: 048
  18. MEROPENEM. [Concomitant]
     Active Substance: MEROPENEM
     Indication: CHRONIC OBSTRUCTIVE PULMONARY DISEASE
     Route: 042
  19. SALBUTAMOL [Concomitant]
     Active Substance: ALBUTEROL
     Indication: PNEUMONIA
     Dosage: 200 ?G, PRN
     Route: 055
     Dates: start: 20191007
  20. BENZYLPENICILLIN SODIUM [Concomitant]
     Active Substance: PENICILLIN G SODIUM
  21. COLISTIN [Concomitant]
     Active Substance: COLISTIN

REACTIONS (1)
  - Sepsis [Fatal]
